FAERS Safety Report 14616761 (Version 1)
Quarter: 2018Q1

REPORT INFORMATION
  Report Type: Spontaneous
  Country: US (occurrence: US)
  Receive Date: 20180308
  Receipt Date: 20180308
  Transmission Date: 20180509
  Serious: Yes (Other)
  Sender: FDA-Public Use
  Company Number: None

PATIENT
  Age: 45 Year
  Sex: Male

DRUGS (3)
  1. OXYCODONE [Suspect]
     Active Substance: OXYCODONE
  2. ROBAXIN [Suspect]
     Active Substance: METHOCARBAMOL
  3. OXYCODONE [Suspect]
     Active Substance: OXYCODONE

REACTIONS (2)
  - Malaise [None]
  - Drug dose omission [None]

NARRATIVE: CASE EVENT DATE: 20180306
